FAERS Safety Report 9757580 (Version 2)
Quarter: 2014Q2

REPORT INFORMATION
  Report Type: Not Available
  Country: FR (occurrence: FR)
  Receive Date: 20131216
  Receipt Date: 20140415
  Transmission Date: 20141212
  Serious: Yes (Hospitalization)
  Sender: FDA-Public Use
  Company Number: FR-BEH-2013039409

PATIENT
  Age: 83 Year
  Sex: Male

DRUGS (8)
  1. PRIVIGEN [Suspect]
     Indication: POLYNEUROPATHY
     Route: 042
     Dates: start: 20131125
  2. EFFEXOR [Concomitant]
  3. LOPRESSOR [Concomitant]
  4. TRIATEC [Concomitant]
  5. PERFALGAN [Concomitant]
  6. TAZOCILLINE [Concomitant]
  7. FLAGYL [Concomitant]
  8. LOVENOX [Concomitant]

REACTIONS (12)
  - Bacterial sepsis [Not Recovered/Not Resolved]
  - Acinetobacter bacteraemia [Not Recovered/Not Resolved]
  - Abdominal pain [Not Recovered/Not Resolved]
  - Chills [Not Recovered/Not Resolved]
  - Headache [Not Recovered/Not Resolved]
  - Pyrexia [Recovered/Resolved]
  - Diarrhoea [Unknown]
  - Nausea [Unknown]
  - Vomiting [Unknown]
  - Infection [Unknown]
  - Hypoxia [Unknown]
  - Abdominal pain [Unknown]
